FAERS Safety Report 24846559 (Version 1)
Quarter: 2025Q1

REPORT INFORMATION
  Report Type: Spontaneous
  Country: ES (occurrence: ES)
  Receive Date: 20250115
  Receipt Date: 20250115
  Transmission Date: 20250409
  Serious: Yes (Hospitalization)
  Sender: TEVA
  Company Number: None

PATIENT
  Age: 33 Year
  Sex: Male
  Weight: 92.4 kg

DRUGS (3)
  1. ETOPOSIDE [Suspect]
     Active Substance: ETOPOSIDE
     Indication: Testicular germ cell cancer
     Route: 042
     Dates: start: 20241004, end: 20241004
  2. BLEOMYCIN [Suspect]
     Active Substance: BLEOMYCIN SULFATE
     Indication: Testicular germ cell cancer
     Route: 042
     Dates: start: 20241004, end: 20241004
  3. CISPLATIN [Suspect]
     Active Substance: CISPLATIN
     Indication: Testicular germ cell cancer
     Route: 042
     Dates: start: 20241004, end: 20241004

REACTIONS (3)
  - Anaemia [Recovering/Resolving]
  - Thrombocytopenia [Recovered/Resolved]
  - Agranulocytosis [Recovered/Resolved]

NARRATIVE: CASE EVENT DATE: 20241007
